FAERS Safety Report 20679688 (Version 2)
Quarter: 2022Q2

REPORT INFORMATION
  Report Type: Report from Study
  Country: FR (occurrence: FR)
  Receive Date: 20220406
  Receipt Date: 20220412
  Transmission Date: 20220721
  Serious: Yes (Hospitalization)
  Sender: FDA-Public Use
  Company Number: FR-DSRSG-DS8201AU206_33032009_000004

PATIENT
  Age: 9 Decade
  Sex: Female
  Weight: 62 kg

DRUGS (13)
  1. TRASTUZUMAB DERUXTECAN [Suspect]
     Active Substance: TRASTUZUMAB DERUXTECAN
     Indication: HER2 mutant non-small cell lung cancer
     Dosage: 6.4 MG/KG, ONCE EVERY 3 WK
     Route: 042
     Dates: start: 20211214, end: 20211214
  2. TRASTUZUMAB DERUXTECAN [Suspect]
     Active Substance: TRASTUZUMAB DERUXTECAN
     Dosage: 5.4 MG/KG, ONCE EVERY 3 WK
     Route: 042
     Dates: start: 20220107, end: 20220107
  3. TRASTUZUMAB DERUXTECAN [Suspect]
     Active Substance: TRASTUZUMAB DERUXTECAN
     Dosage: 4.4 MG/KG, ONCE EVERY 3 WK
     Route: 042
     Dates: start: 20220125, end: 20220125
  4. OXYGEN [Concomitant]
     Active Substance: OXYGEN
     Dosage: 1 OTHER
     Route: 055
     Dates: start: 20220121, end: 20220207
  5. OLANZAPINE [Concomitant]
     Active Substance: OLANZAPINE
     Dosage: 1 TABLET
     Route: 048
     Dates: start: 20211220
  6. LANSOPRAZOLE [Concomitant]
     Active Substance: LANSOPRAZOLE
     Dosage: 1 TABLET
     Route: 048
     Dates: start: 20211230, end: 20220216
  7. PREDNISONE [Concomitant]
     Active Substance: PREDNISONE
     Dosage: 1 TABLET
     Route: 048
     Dates: start: 20210124, end: 20220131
  8. PREDNISONE [Concomitant]
     Active Substance: PREDNISONE
     Dosage: 1 TABLET
     Route: 048
     Dates: start: 20220103, end: 20220110
  9. PREDNISONE [Concomitant]
     Active Substance: PREDNISONE
     Dosage: 1 TABLET
     Route: 048
     Dates: start: 20220110, end: 20220117
  10. PREDNISONE [Concomitant]
     Active Substance: PREDNISONE
     Dosage: 1 TABLET
     Route: 048
     Dates: start: 20220117, end: 20220124
  11. EYLEA [Concomitant]
     Active Substance: AFLIBERCEPT
     Indication: Cataract
     Dosage: 1 DROP
     Route: 031
     Dates: start: 20211202
  12. COSOPT [Concomitant]
     Active Substance: DORZOLAMIDE HYDROCHLORIDE\TIMOLOL MALEATE
     Indication: Cataract
     Dosage: 1 DROP
     Route: 061
     Dates: start: 2020
  13. LATANOPROST [Concomitant]
     Active Substance: LATANOPROST
     Indication: Cataract
     Dosage: 1 DROP
     Route: 061
     Dates: start: 20211214

REACTIONS (1)
  - Interstitial lung disease [Not Recovered/Not Resolved]

NARRATIVE: CASE EVENT DATE: 20220129
